FAERS Safety Report 4284306-5 (Version None)
Quarter: 2004Q1

REPORT INFORMATION
  Report Type: 
  Country: None (occurrence: None)
  Receive Date: 20040203
  Receipt Date: 20031111
  Transmission Date: 20041129
  Serious: Yes (Disabling)
  Sender: FDA-Public Use
  Company Number: WAES 0311USA01214

PATIENT
  Sex: Female
  Weight: 50 kg

DRUGS (3)
  1. AMITRIPTYLINE HYDROCHLORIDE [Concomitant]
  2. ANTIMICROBIAL (UNSPECIFIED) [Concomitant]
  3. VIOXX [Suspect]
     Indication: POST PROCEDURAL PAIN
     Route: 048

REACTIONS (1)
  - DIARRHOEA [None]
